FAERS Safety Report 26037024 (Version 1)
Quarter: 2025Q4

REPORT INFORMATION
  Report Type: Report from Study
  Country: US (occurrence: US)
  Receive Date: 20251112
  Receipt Date: 20251112
  Transmission Date: 20260117
  Serious: Yes (Other)
  Sender: MALLINCKRODT
  Company Number: US-MALLINCKRODT-MNK202506883

PATIENT
  Sex: Female
  Weight: 140 kg

DRUGS (3)
  1. CORTICOTROPIN [Suspect]
     Active Substance: CORTICOTROPIN
     Indication: Sarcoidosis
     Dosage: UNKNOWN
  2. INFLUENZA VIRUS VACCINE [Concomitant]
     Active Substance: INFLUENZA VIRUS VACCINE
     Dosage: UNKNOWN
  3. COVID-19 VACCINE [Concomitant]
     Indication: COVID-19 immunisation
     Dosage: UNKNOWN

REACTIONS (7)
  - Choking [Unknown]
  - Blood sodium increased [Unknown]
  - Vitreous floaters [Unknown]
  - Cough [Unknown]
  - Dyspnoea [Unknown]
  - Temperature intolerance [Unknown]
  - Sinusitis [Not Recovered/Not Resolved]
